FAERS Safety Report 18819837 (Version 1)
Quarter: 2021Q1

REPORT INFORMATION
  Report Type: Spontaneous
  Country: US (occurrence: US)
  Receive Date: 20210202
  Receipt Date: 20210202
  Transmission Date: 20210419
  Serious: Yes (Death)
  Sender: FDA-Public Use
  Company Number: US-BIOVITRUM-2021US1106

PATIENT
  Sex: Female
  Weight: 8 kg

DRUGS (5)
  1. SYNAGIS [Suspect]
     Active Substance: PALIVIZUMAB
     Indication: CEREBROHEPATORENAL SYNDROME
  2. SYNAGIS [Suspect]
     Active Substance: PALIVIZUMAB
     Indication: EPILEPSY
     Route: 030
  3. EPIDIOLEX [Concomitant]
     Active Substance: CANNABIDIOL
  4. SYNAGIS [Suspect]
     Active Substance: PALIVIZUMAB
     Indication: DISEASE SUSCEPTIBILITY
  5. SYNAGIS [Suspect]
     Active Substance: PALIVIZUMAB
     Indication: FAILURE TO THRIVE

REACTIONS (2)
  - Death [Fatal]
  - Off label use [Unknown]
